FAERS Safety Report 9328425 (Version 2)
Quarter: 2013Q3

REPORT INFORMATION
  Report Type: Spontaneous
  Country: US (occurrence: US)
  Receive Date: 20130604
  Receipt Date: 20130709
  Transmission Date: 20140515
  Serious: Yes (Life-Threatening)
  Sender: FDA-Public Use
  Company Number: US-009507513-1306USA000404

PATIENT
  Age: 44 Year
  Sex: Female

DRUGS (2)
  1. ASMANEX TWISTHALER [Suspect]
     Indication: ASTHMA
     Dosage: 1 PUFF AT BEDTIME (STRENGTH 220)
     Route: 055
     Dates: start: 20130528
  2. VENTOLIN (ALBUTEROL) [Concomitant]

REACTIONS (3)
  - Dyspnoea [Recovering/Resolving]
  - Drug dose omission [Unknown]
  - Product container issue [Unknown]
